FAERS Safety Report 9900098 (Version 1)
Quarter: 2014Q1

REPORT INFORMATION
  Report Type: Spontaneous
  Country: US (occurrence: US)
  Receive Date: 20140214
  Receipt Date: 20140214
  Transmission Date: 20141002
  Serious: Yes (Death, Life-Threatening, Hospitalization, Other)
  Sender: FDA-Public Use
  Company Number: US-ABBVIE-14P-163-1200465-00

PATIENT
  Sex: Male
  Weight: 54.48 kg

DRUGS (1)
  1. HUMIRA [Suspect]
     Indication: PRODUCT USED FOR UNKNOWN INDICATION
     Dosage: 6 DOSES
     Dates: start: 2010

REACTIONS (10)
  - Death [Fatal]
  - Adverse drug reaction [Not Recovered/Not Resolved]
  - Immunodeficiency [Not Recovered/Not Resolved]
  - Infection [Not Recovered/Not Resolved]
  - Intestinal perforation [Not Recovered/Not Resolved]
  - Pain [Recovered/Resolved]
  - Staphylococcal infection [Unknown]
  - Sepsis [Unknown]
  - Pneumonia [Unknown]
  - Quality of life decreased [Not Recovered/Not Resolved]
